FAERS Safety Report 18158549 (Version 2)
Quarter: 2020Q3

REPORT INFORMATION
  Report Type: Spontaneous
  Country: IT (occurrence: IT)
  Receive Date: 20200817
  Receipt Date: 20200825
  Transmission Date: 20201103
  Serious: Yes (Hospitalization)
  Sender: FDA-Public Use
  Company Number: NVSC2020IT224619

PATIENT
  Age: 49 Year
  Sex: Male

DRUGS (6)
  1. TACHIDOL [Suspect]
     Active Substance: ACETAMINOPHEN\CODEINE PHOSPHATE
     Indication: NECK PAIN
     Dosage: 1 DF, QD
     Route: 048
     Dates: start: 20200701
  2. PALEXIA [Suspect]
     Active Substance: TAPENTADOL HYDROCHLORIDE
     Indication: NECK PAIN
     Dosage: 100 MG, QD
     Route: 048
     Dates: start: 20200701
  3. RIVOTRIL [Concomitant]
     Active Substance: CLONAZEPAM
     Indication: PRODUCT USED FOR UNKNOWN INDICATION
     Dosage: UNK
     Route: 065
  4. NEBIVOLOL. [Concomitant]
     Active Substance: NEBIVOLOL
     Indication: PRODUCT USED FOR UNKNOWN INDICATION
     Dosage: UNK
     Route: 065
  5. PARACETAMOL [Suspect]
     Active Substance: ACETAMINOPHEN
     Indication: NECK PAIN
     Dosage: 1 DF, QD
     Route: 048
     Dates: start: 20200701
  6. MUSCORIL [Concomitant]
     Active Substance: THIOCOLCHICOSIDE
     Indication: NECK PAIN
     Dosage: 1 DF, QD
     Route: 048
     Dates: start: 20200701

REACTIONS (4)
  - Weight decreased [Unknown]
  - Drug abuse [Unknown]
  - Constipation [Unknown]
  - Neck pain [Unknown]

NARRATIVE: CASE EVENT DATE: 20200701
